FAERS Safety Report 6929861-9 (Version None)
Quarter: 2010Q3

REPORT INFORMATION
  Report Type: 
  Country: None (occurrence: None)
  Receive Date: 20100818
  Receipt Date: 20100816
  Transmission Date: 20110219
  Serious: Yes (Other)
  Sender: FDA-Public Use
  Company Number: BR-JNJCH-2007318298

PATIENT
  Sex: Male

DRUGS (6)
  1. ZYRTEC [Suspect]
     Indication: HYPERSENSITIVITY
     Dosage: TEXT:10 MG UNKNOWN
     Route: 048
  2. MYLANTA PLUS [Suspect]
     Indication: DYSPEPSIA
     Dosage: TEXT:ONE SPOON PRN
     Route: 048
  3. DRUG, UNSPECIFIED [Suspect]
     Dosage: TEXT:SACHET
     Route: 065
  4. FENERGAN [Suspect]
     Dosage: TEXT:INJECTION, UNKNOWN
     Route: 065
  5. DRUG, UNSPECIFIED [Suspect]
     Indication: ANTIALLERGIC THERAPY
     Dosage: TEXT:UNKNOWN
     Route: 065
  6. POLARAMINE [Suspect]
     Indication: HYPERSENSITIVITY
     Route: 048

REACTIONS (4)
  - CONDITION AGGRAVATED [None]
  - EYE SWELLING [None]
  - OEDEMA PERIPHERAL [None]
  - RASH MACULAR [None]
